FAERS Safety Report 26148872 (Version 1)
Quarter: 2025Q4

REPORT INFORMATION
  Report Type: Spontaneous
  Country: EU (occurrence: EU)
  Receive Date: 20251212
  Receipt Date: 20251212
  Transmission Date: 20260118
  Serious: Yes (Hospitalization)
  Sender: TEVA
  Company Number: None

PATIENT
  Age: 78 Year
  Sex: Male
  Weight: 60 kg

DRUGS (1)
  1. CABERGOLINE [Suspect]
     Active Substance: CABERGOLINE
     Indication: Hyperprolactinaemia
     Dosage: 0.5
     Route: 048

REACTIONS (3)
  - Hallucinations, mixed [Recovered/Resolved]
  - Aggression [Recovered/Resolved]
  - Irregular sleep wake rhythm disorder [Recovered/Resolved]

NARRATIVE: CASE EVENT DATE: 20251104
